FAERS Safety Report 7056673-0 (Version None)
Quarter: 2010Q4

REPORT INFORMATION
  Report Type: 
  Country: None (occurrence: None)
  Receive Date: 20101021
  Receipt Date: 20101012
  Transmission Date: 20110411
  Serious: Yes (Death)
  Sender: FDA-Public Use
  Company Number: US-AMGEN GMBH-QUU438196

PATIENT

DRUGS (2)
  1. NPLATE [Suspect]
     Indication: IDIOPATHIC THROMBOCYTOPENIC PURPURA
     Dosage: 150 A?G, UNK
     Dates: start: 20080919, end: 20090811
  2. IMMU-G [Concomitant]
     Dosage: UNK UNK, UNK
     Dates: start: 19950127

REACTIONS (1)
  - DEATH [None]
